FAERS Safety Report 19971803 (Version 1)
Quarter: 2021Q4

REPORT INFORMATION
  Report Type: Spontaneous
  Country: IN (occurrence: IN)
  Receive Date: 20211019
  Receipt Date: 20211019
  Transmission Date: 20220303
  Serious: Yes (Life-Threatening, Other)
  Sender: FDA-Public Use
  Company Number: IN-PFIZER INC-K200700061

PATIENT
  Age: 26 Year
  Sex: Female

DRUGS (1)
  1. PITOCIN [Suspect]
     Active Substance: OXYTOCIN
     Indication: Labour induction
     Dosage: UNK (2 MLU/MIN INCREASED BY 2MIU/MIN Q30 MIN UP TO 64 MIU/MIN)
     Route: 042

REACTIONS (16)
  - Acute pulmonary oedema [Recovered/Resolved]
  - Hyponatraemia [Recovered/Resolved]
  - Water intoxication [Unknown]
  - Restlessness [Unknown]
  - Central venous pressure increased [Unknown]
  - Dyspnoea [Unknown]
  - Face oedema [Unknown]
  - Blood pressure increased [Unknown]
  - Heart rate increased [Unknown]
  - Crepitations [Unknown]
  - Rhonchi [Unknown]
  - Respiratory rate increased [Unknown]
  - Oxygen saturation decreased [Unknown]
  - Blood pH decreased [Unknown]
  - PO2 decreased [Unknown]
  - PCO2 decreased [Unknown]
